FAERS Safety Report 23389595 (Version 2)
Quarter: 2024Q1

REPORT INFORMATION
  Report Type: Other
  Country: US (occurrence: None)
  Receive Date: 20240111
  Receipt Date: 20240224
  Transmission Date: 20240409
  Serious: Yes (Other)
  Sender: FDA-Public Use
  Company Number: US-ROCHE-3485947

PATIENT
  Age: 65 Year
  Sex: Female
  Weight: 106.69 kg

DRUGS (4)
  1. OCREVUS [Suspect]
     Active Substance: OCRELIZUMAB
     Indication: Multiple sclerosis
     Dosage: DATE OF TREATMENT: 15/AUG/2023, 28/AUG/2023?DOSE : 300 UNIT NOT REPORTED
     Route: 042
     Dates: start: 202308
  2. TYSABRI [Concomitant]
     Active Substance: NATALIZUMAB
  3. GABAPENTIN [Concomitant]
     Active Substance: GABAPENTIN
  4. VIMPAT [Concomitant]
     Active Substance: LACOSAMIDE

REACTIONS (13)
  - Fall [Unknown]
  - Breast injury [Recovered/Resolved]
  - Arthralgia [Not Recovered/Not Resolved]
  - Mass [Not Recovered/Not Resolved]
  - Pain [Not Recovered/Not Resolved]
  - Alopecia [Unknown]
  - Erythema [Unknown]
  - Hypoacusis [Recovered/Resolved]
  - Contusion [Recovered/Resolved]
  - Weight increased [Not Recovered/Not Resolved]
  - Peripheral swelling [Not Recovered/Not Resolved]
  - Vision blurred [Not Recovered/Not Resolved]
  - Joint swelling [Not Recovered/Not Resolved]

NARRATIVE: CASE EVENT DATE: 20230901
